FAERS Safety Report 8268199-7 (Version None)
Quarter: 2012Q2

REPORT INFORMATION
  Report Type: 
  Country: None (occurrence: None)
  Receive Date: 20120409
  Receipt Date: 20120328
  Transmission Date: 20120825
  Serious: Yes (Other)
  Sender: FDA-Public Use
  Company Number: GB-ROCHE-1050969

PATIENT
  Sex: Male
  Weight: 68 kg

DRUGS (2)
  1. XELODA [Suspect]
     Route: 048
     Dates: start: 20120307, end: 20120319
  2. XELODA [Suspect]
     Indication: PALLIATIVE CARE
     Route: 048
     Dates: start: 20120105

REACTIONS (5)
  - PENILE PAIN [None]
  - GENITAL ERYTHEMA [None]
  - BLISTER [None]
  - SCROTAL PAIN [None]
  - DIARRHOEA [None]
